FAERS Safety Report 4338311-0 (Version None)
Quarter: 2004Q2

REPORT INFORMATION
  Report Type: 
  Country: None (occurrence: None)
  Receive Date: 20040409
  Receipt Date: 20040329
  Transmission Date: 20050107
  Serious: Yes (Hospitalization, Other)
  Sender: FDA-Public Use
  Company Number: HQWYE212129MAR04

PATIENT
  Age: 32 Year
  Sex: Female

DRUGS (6)
  1. RAPAMUNE [Suspect]
     Indication: PROPHYLAXIS AGAINST TRANSPLANT REJECTION
     Dosage: 3 MG 1X PER 1 DAY
     Route: 048
     Dates: start: 19990323, end: 20040327
  2. RANITIDINE [Concomitant]
  3. METOPROLOL    (METOPROLOL) [Concomitant]
  4. SIMVASTATIN [Concomitant]
  5. ENALAPRIL MALEATE [Concomitant]
  6. FUROSEMIDE [Concomitant]

REACTIONS (1)
  - CHOLECYSTITIS [None]
